FAERS Safety Report 7217997-7 (Version None)
Quarter: 2011Q1

REPORT INFORMATION
  Report Type: 
  Country: None (occurrence: None)
  Receive Date: 20110110
  Receipt Date: 20110105
  Transmission Date: 20110831
  Serious: Yes (Hospitalization)
  Sender: FDA-Public Use
  Company Number: B0692654A

PATIENT
  Sex: Female

DRUGS (9)
  1. SIFROL [Concomitant]
  2. VALTREX [Suspect]
     Indication: HERPES ZOSTER
     Dosage: 1000MG PER DAY
     Route: 048
     Dates: start: 20101215, end: 20101220
  3. ETALPHA [Concomitant]
  4. NATRON [Concomitant]
  5. TITRALAC [Concomitant]
  6. ALBYL-E [Concomitant]
  7. METHOXY POLYETHYLENE GLYCOL-EPOETIN BETA [Concomitant]
  8. DIURAL [Concomitant]
  9. CALCIUM-SANDOZ [Concomitant]

REACTIONS (3)
  - CONFUSIONAL STATE [None]
  - PARESIS [None]
  - DYSARTHRIA [None]
